FAERS Safety Report 9826155 (Version 2)
Quarter: 2014Q1

REPORT INFORMATION
  Report Type: Spontaneous
  Country: AU (occurrence: AU)
  Receive Date: 20140117
  Receipt Date: 20140311
  Transmission Date: 20141002
  Serious: Yes (Hospitalization, Disabling, Other)
  Sender: FDA-Public Use
  Company Number: AU-MERCK-1401AUS002355

PATIENT
  Age: 37 Year
  Sex: Female

DRUGS (7)
  1. PEGINTERFERON ALFA-2B [Suspect]
     Indication: HEPATITIS C
     Dosage: QW
     Route: 058
     Dates: start: 20130920, end: 20131018
  2. RIBAVIRIN [Suspect]
     Indication: HEPATITIS C
     Dosage: TOTAL DAILY DOSE 1200 MG, QD
     Route: 048
     Dates: start: 20130920, end: 20131020
  3. DIAZEPAM [Concomitant]
     Indication: ANXIETY
     Dosage: TOTAL DAILY DOSE 10 MG
     Route: 048
     Dates: start: 20130813
  4. ENDEP [Concomitant]
     Indication: DEPRESSION
     Dosage: 50 MG, QD
     Route: 048
     Dates: start: 20130813
  5. SEROQUEL [Concomitant]
     Indication: SCHIZOPHRENIA
     Dosage: TOTAL DAILY DOSE 100-200 MG, QD
     Route: 048
     Dates: start: 20131021
  6. HALOPERIDOL [Concomitant]
     Dosage: 10 MG, BID
  7. BENZTROPINE MESYLATE [Concomitant]
     Dosage: 1 MG, BID
     Route: 048

REACTIONS (8)
  - Activities of daily living impaired [Recovering/Resolving]
  - Speech disorder [Recovering/Resolving]
  - Paranoia [Recovering/Resolving]
  - Condition aggravated [Recovering/Resolving]
  - Psychotic disorder [Recovering/Resolving]
  - Hallucination, auditory [Recovering/Resolving]
  - Suicidal ideation [Recovering/Resolving]
  - Personality disorder [Recovering/Resolving]
